FAERS Safety Report 23727478 (Version 1)
Quarter: 2024Q2

REPORT INFORMATION
  Report Type: Spontaneous
  Country: US (occurrence: None)
  Receive Date: 20240409
  Receipt Date: 20240409
  Transmission Date: 20240715
  Serious: No
  Sender: FDA-Public Use
  Company Number: None

PATIENT
  Age: 48 Year
  Sex: Female

DRUGS (1)
  1. PLEGRIDY [Suspect]
     Active Substance: PEGINTERFERON BETA-1A

REACTIONS (6)
  - Product dispensing error [None]
  - Visual impairment [None]
  - Cellulitis [None]
  - Vision blurred [None]
  - Unevaluable event [None]
  - Pseudoneurologic symptom [None]

NARRATIVE: CASE EVENT DATE: 20240124
